FAERS Safety Report 15903074 (Version 1)
Quarter: 2019Q1

REPORT INFORMATION
  Report Type: Spontaneous
  Country: US (occurrence: US)
  Receive Date: 20190202
  Receipt Date: 20190202
  Transmission Date: 20190417
  Serious: No
  Sender: FDA-Public Use
  Company Number: US-UNITED THERAPEUTICS-UNT-2019-001768

PATIENT
  Age: 51 Year
  Sex: Female
  Weight: 94.33 kg

DRUGS (1)
  1. REMODULIN [Suspect]
     Active Substance: TREPROSTINIL
     Indication: PULMONARY ARTERIAL HYPERTENSION
     Dosage: 0.040 ?G/KG, CONTINUING
     Route: 058
     Dates: start: 20180221

REACTIONS (4)
  - Dizziness [Unknown]
  - Tremor [Unknown]
  - Product dose omission [Unknown]
  - Headache [Unknown]

NARRATIVE: CASE EVENT DATE: 201901
